FAERS Safety Report 7588699-2 (Version None)
Quarter: 2011Q2

REPORT INFORMATION
  Report Type: 
  Country: None (occurrence: None)
  Receive Date: 20110627
  Receipt Date: 20110614
  Transmission Date: 20111010
  Serious: Yes (Death)
  Sender: FDA-Public Use
  Company Number: FK201101204

PATIENT
  Age: 62 Year
  Sex: Female

DRUGS (3)
  1. TRETINOIN [Suspect]
     Indication: LEUKAEMIA
  2. IDARUBICIN HYDROCHLORIDE [Suspect]
     Indication: LEUKAEMIA
  3. CYTARABINE [Suspect]
     Indication: LEUKAEMIA

REACTIONS (6)
  - ASTHENIA [None]
  - HEPATIC FAILURE [None]
  - NAUSEA [None]
  - DISEASE RECURRENCE [None]
  - HEPATITIS B [None]
  - PANCYTOPENIA [None]
